FAERS Safety Report 25507705 (Version 1)
Quarter: 2025Q3

REPORT INFORMATION
  Report Type: Spontaneous
  Country: GB (occurrence: GB)
  Receive Date: 20250703
  Receipt Date: 20250703
  Transmission Date: 20251020
  Serious: Yes (Other)
  Sender: SAMSUNG BIOEPIS
  Company Number: GB-SANDOZ-SDZ2025GB044693

PATIENT
  Age: 34 Year
  Sex: Female

DRUGS (2)
  1. PYZCHIVA [Suspect]
     Active Substance: USTEKINUMAB-TTWE
     Indication: Psoriasis
     Dosage: 90 MG/E84D;
     Route: 058
  2. METHOTREXATE [Suspect]
     Active Substance: METHOTREXATE
     Indication: Product used for unknown indication

REACTIONS (5)
  - Ectopic pregnancy [Unknown]
  - Menstrual disorder [Unknown]
  - Anaemia [Unknown]
  - Exposure during pregnancy [Unknown]
  - Therapeutic product effect decreased [Unknown]
